FAERS Safety Report 14688614 (Version 1)
Quarter: 2018Q1

REPORT INFORMATION
  Report Type: Spontaneous
  Country: BR (occurrence: BR)
  Receive Date: 20180328
  Receipt Date: 20180328
  Transmission Date: 20180509
  Serious: Yes (Hospitalization, Other)
  Sender: FDA-Public Use
  Company Number: BR-PFIZER INC-2009205228

PATIENT
  Age: 70 Year
  Sex: Female
  Weight: 57 kg

DRUGS (7)
  1. FRONTAL [Suspect]
     Active Substance: ALPRAZOLAM
     Dosage: 0.5 MG, DAILY
     Dates: start: 200812
  2. FRONTAL [Suspect]
     Active Substance: ALPRAZOLAM
     Dosage: 0.5 MG, DAILY
  3. FRONTAL [Suspect]
     Active Substance: ALPRAZOLAM
     Indication: INSOMNIA
     Dosage: 0.25 MG, AS NEEDED
     Dates: start: 200811
  4. OSCAL 500-D [Concomitant]
     Dosage: UNK
  5. FRONTAL [Suspect]
     Active Substance: ALPRAZOLAM
     Dosage: 1 MG, 1X/DAY (EVERY NIGHT)
  6. ALENDRONATE SODIUM. [Concomitant]
     Active Substance: ALENDRONATE SODIUM
     Dosage: UNK
  7. CALCIUM [Concomitant]
     Active Substance: CALCIUM

REACTIONS (8)
  - Rectal cancer [Recovered/Resolved]
  - Drug ineffective [Recovered/Resolved]
  - Tremor [Recovered/Resolved]
  - Arrhythmia [Recovered/Resolved]
  - Anxiety [Recovered/Resolved]
  - Palpitations [Recovered/Resolved]
  - Breast cancer [Recovered/Resolved]
  - Feeling abnormal [Recovered/Resolved]

NARRATIVE: CASE EVENT DATE: 200811
